FAERS Safety Report 22175136 (Version 2)
Quarter: 2023Q2

REPORT INFORMATION
  Report Type: Spontaneous
  Country: US (occurrence: US)
  Receive Date: 20230405
  Receipt Date: 20230602
  Transmission Date: 20230721
  Serious: Yes (Other)
  Sender: FDA-Public Use
  Company Number: US-BRISTOL-MYERS SQUIBB COMPANY-2023-047997

PATIENT
  Age: 85 Year
  Sex: Female
  Weight: 62.14 kg

DRUGS (1)
  1. REVLIMID [Suspect]
     Active Substance: LENALIDOMIDE
     Indication: Plasma cell myeloma
     Dosage: 21 DAY ON AND 7 DAYS OFF
     Route: 048

REACTIONS (6)
  - Peripheral swelling [Unknown]
  - Neutropenia [Unknown]
  - Weight decreased [Unknown]
  - Decreased appetite [Unknown]
  - Fatigue [Unknown]
  - Drug hypersensitivity [Unknown]
